FAERS Safety Report 13993197 (Version 1)
Quarter: 2017Q3

REPORT INFORMATION
  Report Type: Spontaneous
  Country: US (occurrence: US)
  Receive Date: 20170920
  Receipt Date: 20170920
  Transmission Date: 20171128
  Serious: Yes (Other)
  Sender: FDA-Public Use
  Company Number: US-BRISTOL-MYERS SQUIBB COMPANY-BMS-2017-082404

PATIENT
  Sex: Female
  Weight: 78.46 kg

DRUGS (1)
  1. ELIQUIS [Suspect]
     Active Substance: APIXABAN
     Indication: CEREBROVASCULAR ACCIDENT PROPHYLAXIS
     Dosage: 5 MG, UNK
     Route: 048

REACTIONS (8)
  - Mental impairment [Not Recovered/Not Resolved]
  - Joint injury [Unknown]
  - Accident [Unknown]
  - Drug dispensing error [Unknown]
  - Limb injury [Unknown]
  - Bronchitis [Unknown]
  - Cardiac disorder [Unknown]
  - Paranoia [Unknown]
